FAERS Safety Report 8021020-4 (Version None)
Quarter: 2012Q1

REPORT INFORMATION
  Report Type: 
  Country: None (occurrence: None)
  Receive Date: 20120104
  Receipt Date: 20111227
  Transmission Date: 20120608
  Serious: Yes (Hospitalization, Other)
  Sender: FDA-Public Use
  Company Number: US-BAYER-2010-003100

PATIENT
  Age: 38 Year
  Sex: Female
  Weight: 77 kg

DRUGS (9)
  1. YAZ [Suspect]
     Dosage: UNK
     Route: 048
     Dates: start: 20100201, end: 20100601
  2. KLONOPIN [Concomitant]
     Indication: ANXIETY
     Dosage: UNK
     Dates: start: 20060101
  3. COUGH SYRUP [Concomitant]
     Indication: COUGH
     Dosage: UNK
     Dates: start: 20091028
  4. MORPHINE [Concomitant]
     Dosage: 5 MG, UNK
     Route: 042
     Dates: start: 20091031
  5. BUPROPION HCL [Concomitant]
     Indication: DEPRESSION
     Dosage: 300 MG, UNK
     Dates: start: 20060101, end: 20110101
  6. MEDICOL [Concomitant]
     Dosage: UNK
     Route: 048
     Dates: start: 20091019
  7. ZOFRAN [Concomitant]
     Dosage: 4 MG, UNK
     Route: 042
     Dates: start: 20091031
  8. CIPROFLOXACIN [Concomitant]
     Indication: INFECTION
     Dosage: 500 MG, UNK
     Dates: start: 20091027
  9. POLYROSSIN [Concomitant]
     Indication: COUGH
     Dosage: UNK
     Dates: start: 20091027

REACTIONS (15)
  - DIZZINESS [None]
  - CHEST PAIN [None]
  - CHOLECYSTITIS INFECTIVE [None]
  - HEPATIC ENZYME ABNORMAL [None]
  - VOMITING [None]
  - POST PROCEDURAL COMPLICATION [None]
  - CHOLELITHIASIS [None]
  - DEPRESSION [None]
  - ANXIETY [None]
  - CONSTIPATION [None]
  - PAIN [None]
  - NAUSEA [None]
  - BILIARY COLIC [None]
  - PANCREATOLITHIASIS [None]
  - IRRITABLE BOWEL SYNDROME [None]
